FAERS Safety Report 5492797-7 (Version None)
Quarter: 2007Q4

REPORT INFORMATION
  Report Type: 
  Country: None (occurrence: None)
  Receive Date: 20071023
  Receipt Date: 20071012
  Transmission Date: 20080405
  Serious: Yes (Hospitalization)
  Sender: FDA-Public Use
  Company Number: FR-SOLVAY-00207034515

PATIENT
  Age: 31611 Day
  Sex: Male

DRUGS (6)
  1. PERINDOPRIL ERBUMINE [Suspect]
     Indication: HYPERTENSION
     Dosage: DAILY DOSE: 2 MILLIGRAM(S)
     Route: 048
     Dates: start: 20070524
  2. SKENAN [Suspect]
     Indication: BACK PAIN
     Dosage: DAILY DOSE:  UNKNOWN
     Route: 048
     Dates: start: 20070515, end: 20070530
  3. ACTISKENAN [Suspect]
     Indication: BACK PAIN
     Dosage: DAILY DOSE:  UNKNOWN; 5 MG PRN
     Route: 048
     Dates: start: 20070516, end: 20070530
  4. MODOPAR [Suspect]
     Indication: PARKINSONISM
     Dosage: DAILY DOSE: 125 MILLIGRAM(S)
     Route: 048
     Dates: start: 20070524
  5. IMOVANE [Suspect]
     Indication: INSOMNIA
     Dosage: DAILY DOSE: .5 DOSAGE FORM
     Route: 048
     Dates: start: 20070503
  6. ESIDRIX [Suspect]
     Indication: HYPERTENSION
     Dosage: DAILY DOSE: 12.5 MILLIGRAM(S)
     Route: 048
     Dates: start: 20070517, end: 20070524

REACTIONS (4)
  - CONFUSIONAL STATE [None]
  - CONSTIPATION [None]
  - FAECALOMA [None]
  - HYPERTONIA [None]
